FAERS Safety Report 8447393-6 (Version None)
Quarter: 2012Q2

REPORT INFORMATION
  Report Type: 
  Country: None (occurrence: None)
  Receive Date: 20120619
  Receipt Date: 20120614
  Transmission Date: 20120825
  Serious: Yes (Hospitalization)
  Sender: FDA-Public Use
  Company Number: FR-PFIZER INC-2011093462

PATIENT
  Age: 60 Year
  Sex: Male

DRUGS (7)
  1. LASIX [Suspect]
     Dosage: UNK
     Dates: start: 20101201, end: 20110113
  2. PENTOXIFYLLINE [Suspect]
     Dosage: 20 MG
     Route: 048
     Dates: start: 20110102, end: 20110113
  3. ALLOPURINOL [Suspect]
     Dosage: 1 DF, 1X/DAY
     Route: 048
     Dates: start: 20101201, end: 20110113
  4. LEVOFLOXACIN [Suspect]
     Dosage: UNK
     Route: 048
     Dates: start: 20110104, end: 20110108
  5. AMLODIPINE BESYLATE [Suspect]
     Indication: ENTEROBACTER TEST POSITIVE
     Dosage: UNK
     Route: 048
     Dates: start: 20101201, end: 20110113
  6. PENTOXIFYLLINE [Suspect]
     Dosage: UNK
     Dates: end: 20101218
  7. NEXIUM [Suspect]
     Dosage: 40 MG, 1X/DAY
     Dates: start: 20101227, end: 20110113

REACTIONS (1)
  - DRUG RASH WITH EOSINOPHILIA AND SYSTEMIC SYMPTOMS [None]
